FAERS Safety Report 5710925-2 (Version None)
Quarter: 2008Q2

REPORT INFORMATION
  Report Type: 
  Country: None (occurrence: None)
  Receive Date: 20080421
  Receipt Date: 20080411
  Transmission Date: 20081010
  Serious: Yes (Hospitalization, Other)
  Sender: FDA-Public Use
  Company Number: PHBS2008TW02522

PATIENT
  Age: 19 Year
  Sex: Female
  Weight: 51 kg

DRUGS (8)
  1. EXJADE [Suspect]
     Indication: IRON OVERLOAD
     Dosage: 20 MG/KG/DAY
     Route: 048
  2. EXJADE [Suspect]
     Dosage: 10 MG/KG/DAY
     Route: 048
  3. EXJADE [Suspect]
     Dosage: 500 MG/D
     Route: 048
     Dates: start: 20071129, end: 20071220
  4. FERRIPROX [Suspect]
  5. FRISIUM [Concomitant]
  6. LANTUS [Concomitant]
     Indication: DIABETES MELLITUS
  7. NOVORAPID [Concomitant]
     Indication: DIABETES MELLITUS
  8. DEFERIPRONE (KELFOR) [Concomitant]
     Dates: start: 20070411, end: 20071220

REACTIONS (18)
  - ABDOMINAL PAIN UPPER [None]
  - ALANINE AMINOTRANSFERASE INCREASED [None]
  - ASPARTATE AMINOTRANSFERASE INCREASED [None]
  - BILIARY COLIC [None]
  - BILIRUBIN CONJUGATED INCREASED [None]
  - BLOOD ALKALINE PHOSPHATASE INCREASED [None]
  - BLOOD BILIRUBIN INCREASED [None]
  - BLOOD GLUCOSE INCREASED [None]
  - CHOLELITHIASIS [None]
  - DRUG DEPENDENCE [None]
  - EROSIVE DUODENITIS [None]
  - GAMMA-GLUTAMYLTRANSFERASE INCREASED [None]
  - GASTRIC HAEMORRHAGE [None]
  - GASTRIC ULCER [None]
  - HYPERSENSITIVITY [None]
  - MURPHY'S SIGN POSITIVE [None]
  - RASH [None]
  - STOMACH DISCOMFORT [None]
